FAERS Safety Report 4664362-2 (Version None)
Quarter: 2005Q2

REPORT INFORMATION
  Report Type: 
  Country: None (occurrence: None)
  Receive Date: 20050518
  Receipt Date: 20050429
  Transmission Date: 20051028
  Serious: Yes (Hospitalization)
  Sender: FDA-Public Use
  Company Number: IE-ABBOTT-05P-167-0298985-00

PATIENT
  Sex: Male

DRUGS (2)
  1. EPILIM TABLETS [Suspect]
     Indication: DRUG USE FOR UNKNOWN INDICATION
  2. HYDROXYCHLOROQUINE PHOSPHATE [Interacting]
     Indication: RHEUMATOID ARTHRITIS
     Dates: start: 20050201

REACTIONS (2)
  - CONVULSION [None]
  - DRUG INTERACTION [None]
